FAERS Safety Report 19746350 (Version 5)
Quarter: 2021Q4

REPORT INFORMATION
  Report Type: Spontaneous
  Country: GB (occurrence: GB)
  Receive Date: 20210825
  Receipt Date: 20211231
  Transmission Date: 20220303
  Serious: Yes (Death, Congenital Anomaly, Other)
  Sender: FDA-Public Use
  Company Number: GB-BIOGEN-2021BI01042758

PATIENT

DRUGS (2)
  1. TYSABRI [Suspect]
     Active Substance: NATALIZUMAB
     Indication: Product used for unknown indication
     Route: 064
     Dates: start: 20200407
  2. TYSABRI [Suspect]
     Active Substance: NATALIZUMAB
     Route: 064
     Dates: start: 202012, end: 20210601

REACTIONS (4)
  - Foetal malformation [Fatal]
  - Congenital renal disorder [Unknown]
  - Congenital cystic kidney disease [Unknown]
  - Foetal exposure during pregnancy [Recovered/Resolved]
